FAERS Safety Report 15386532 (Version 1)
Quarter: 2018Q3

REPORT INFORMATION
  Report Type: Report from Study
  Country: BE (occurrence: BE)
  Receive Date: 20180914
  Receipt Date: 20180914
  Transmission Date: 20181010
  Serious: Yes (Death)
  Sender: FDA-Public Use
  Company Number: BE-PFIZER INC-2018367903

PATIENT
  Sex: Female

DRUGS (3)
  1. PICTILISIB [Suspect]
     Active Substance: PICTILISIB
     Indication: BREAST CANCER
     Dosage: 60 MG, CYCLIC (DAYS 1?21 OF EACH 28?DAY CYCLE) (21 + 7 SCHEDULE)
     Route: 048
  2. BEVACIZUMAB. [Suspect]
     Active Substance: BEVACIZUMAB
     Indication: BREAST CANCER
     Dosage: 10 MG/KG, CYCLIC (ON DAYS 1 AND 15 OF EACH 28?DAY CYCLE)
     Route: 042
  3. PACLITAXEL. [Suspect]
     Active Substance: PACLITAXEL
     Indication: BREAST CANCER
     Dosage: 90 MG/M2, CYCLIC (ON DAYS 1, 8, AND 15 OF EACH 28? DAY CYCLE)
     Route: 042

REACTIONS (1)
  - Left ventricular dysfunction [Fatal]
